FAERS Safety Report 8021036-8 (Version None)
Quarter: 2011Q4

REPORT INFORMATION
  Report Type: 
  Country: None (occurrence: None)
  Receive Date: 20111228
  Receipt Date: 20111214
  Transmission Date: 20120403
  Serious: Yes (Hospitalization, Other)
  Sender: FDA-Public Use
  Company Number: 2011P1014891

PATIENT
  Age: 60 Year
  Sex: Male

DRUGS (1)
  1. MELOXICAM [Suspect]
     Indication: ARTHRITIS

REACTIONS (18)
  - HALLUCINATION, AUDITORY [None]
  - LETHARGY [None]
  - DECREASED APPETITE [None]
  - STRESS AT WORK [None]
  - AGITATION [None]
  - SLEEP DISORDER [None]
  - RASH ERYTHEMATOUS [None]
  - TERMINAL INSOMNIA [None]
  - SUICIDAL IDEATION [None]
  - JOB CHANGE [None]
  - AGGRESSION [None]
  - BLOOD PRESSURE INCREASED [None]
  - LEUKOCYTOSIS [None]
  - FEELING GUILTY [None]
  - DEPRESSION [None]
  - ANHEDONIA [None]
  - THERMAL BURN [None]
  - PHOTOPSIA [None]
